FAERS Safety Report 20535100 (Version 1)
Quarter: 2022Q1

REPORT INFORMATION
  Report Type: Spontaneous
  Country: GB (occurrence: GB)
  Receive Date: 20220302
  Receipt Date: 20220302
  Transmission Date: 20220423
  Serious: Yes (Other)
  Sender: FDA-Public Use
  Company Number: None

PATIENT
  Age: 74 Year
  Sex: Male
  Weight: 67 kg

DRUGS (5)
  1. ATORVASTATIN [Suspect]
     Active Substance: ATORVASTATIN
     Dosage: TAKE AT NIGHT
     Dates: start: 20220110
  2. AMITRIPTYLINE HYDROCHLORIDE. [Concomitant]
     Dosage: AT NIGHT
     Dates: start: 20200819
  3. CHLORHEXIDINE GLUCONATE [Concomitant]
     Active Substance: CHLORHEXIDINE GLUCONATE
     Dates: start: 20201202
  4. RAMIPRIL. [Concomitant]
     Indication: Ill-defined disorder
     Dosage: TAKE ONE DAILY
     Dates: start: 20220110
  5. RAMIPRIL. [Concomitant]
     Dates: start: 20220110

REACTIONS (3)
  - Diarrhoea haemorrhagic [Recovered/Resolved]
  - Headache [Recovered/Resolved]
  - Dizziness [Recovered/Resolved]

NARRATIVE: CASE EVENT DATE: 20220214
